FAERS Safety Report 15698175 (Version 1)
Quarter: 2018Q4

REPORT INFORMATION
  Report Type: Spontaneous
  Country: US (occurrence: US)
  Receive Date: 20181126
  Receipt Date: 20181126
  Transmission Date: 20190205
  Serious: Yes (Death)
  Sender: FDA-Public Use
  Company Number: None

PATIENT
  Age: 53 Year

DRUGS (9)
  1. VORICONAZOLE. [Suspect]
     Active Substance: VORICONAZOLE
     Indication: INFECTION
     Route: 048
     Dates: start: 20180718, end: 20180814
  2. ACYCLOVIR. [Concomitant]
     Active Substance: ACYCLOVIR
  3. INSULIN [Concomitant]
     Active Substance: INSULIN NOS
  4. METHYLPREDNISOLONE. [Concomitant]
     Active Substance: METHYLPREDNISOLONE
  5. FAMOTIDINE. [Concomitant]
     Active Substance: FAMOTIDINE
  6. LOPERAMIDE [Concomitant]
     Active Substance: LOPERAMIDE
  7. AMLODIPINE [Concomitant]
     Active Substance: AMLODIPINE BESYLATE
  8. ONDANSETRON [Concomitant]
     Active Substance: ONDANSETRON
  9. PANTOPRAZOLE [Concomitant]
     Active Substance: PANTOPRAZOLE

REACTIONS (5)
  - Aspartate aminotransferase increased [None]
  - Hypoxia [None]
  - Alanine aminotransferase increased [None]
  - Abdominal pain [None]
  - Hypotension [None]

NARRATIVE: CASE EVENT DATE: 20180705
